FAERS Safety Report 9512228 (Version 7)
Quarter: 2014Q1

REPORT INFORMATION
  Report Type: Report from Study
  Country: CA (occurrence: CA)
  Receive Date: 20130910
  Receipt Date: 20140114
  Transmission Date: 20141002
  Serious: Yes (Life-Threatening, Other)
  Sender: FDA-Public Use
  Company Number: PHHY2013CA098504

PATIENT
  Sex: Female

DRUGS (8)
  1. CLOZARIL [Suspect]
     Indication: SCHIZOPHRENIA
     Dosage: 400 MG, QHS
     Route: 048
     Dates: start: 20130128
  2. CLOZARIL [Suspect]
     Dosage: UNK UKN, UNK
     Dates: start: 20130205
  3. CALCIUM [Concomitant]
     Dosage: 500 MG, BID
  4. ROCALTROL [Concomitant]
     Dosage: 0.25 MG, QD
  5. SYNTHROID [Concomitant]
     Dosage: 100 UG, QD
  6. VITAMIN E [Concomitant]
     Dosage: 3 DF, DAILY
  7. COLACE [Concomitant]
     Dosage: 100 MG, BID
  8. SENOKOT                                 /UNK/ [Concomitant]
     Dosage: 8.6 UKN, BID (PRN)

REACTIONS (6)
  - Invasive ductal breast carcinoma [Unknown]
  - Hypothyroidism [Unknown]
  - Psychotic disorder [Unknown]
  - Delirium [Unknown]
  - White blood cell count decreased [Not Recovered/Not Resolved]
  - Neutrophil count decreased [Not Recovered/Not Resolved]
